FAERS Safety Report 10869178 (Version 1)
Quarter: 2015Q1

REPORT INFORMATION
  Report Type: Spontaneous
  Country: US (occurrence: US)
  Receive Date: 20150225
  Receipt Date: 20150225
  Transmission Date: 20150721
  Serious: Yes (Hospitalization)
  Sender: FDA-Public Use
  Company Number: US-B.I. PHARMACEUTICALS,INC./RIDGEFIELD-2015-BI-09077BP

PATIENT
  Age: 87 Year
  Sex: Male
  Weight: 55 kg

DRUGS (1)
  1. MIRAPEX [Suspect]
     Active Substance: PRAMIPEXOLE DIHYDROCHLORIDE
     Indication: PARKINSON^S DISEASE
     Dosage: 0.75 MG
     Route: 048
     Dates: start: 201407

REACTIONS (5)
  - Clostridium difficile infection [Recovered/Resolved]
  - Hiatus hernia [Unknown]
  - Nausea [Unknown]
  - Cholelithiasis [Unknown]
  - Pneumonia [Recovered/Resolved]

NARRATIVE: CASE EVENT DATE: 20141223
